FAERS Safety Report 9844010 (Version 1)
Quarter: 2013Q4

REPORT INFORMATION
  Report Type: Spontaneous
  Country: US (occurrence: None)
  Receive Date: 20131223
  Receipt Date: 20131223
  Transmission Date: 20140711
  Serious: No
  Sender: FDA-Public Use
  Company Number: 1000048476

PATIENT
  Age: 75 Year
  Sex: Male

DRUGS (8)
  1. LINZESS (LINACLOTIDE) (145 MICROGRAM, CAPSULES) [Suspect]
     Indication: CONSTIPATION
     Dosage: 145 MCG (145 MCG, 1 IN 1 D), ORAL
     Route: 048
     Dates: start: 20130818
  2. MIRALAX (POLYETHYLENE GLYCOL) (POLYETHYLENE GLYCOL) [Concomitant]
  3. LOSARTAN (LOSARTAN) (LOSARTAN)? [Concomitant]
  4. SINGULAIR (MONTELUKAST SODIUM) (MONTELUKAST SODIUM)? [Concomitant]
  5. FUROSEMIDE (FUROSEMIDE) (FUROSEMIDE) [Concomitant]
  6. SPIRONOLACTONE (SPIRONOLACTONE) (SPIRONOLACTONE)? [Concomitant]
  7. TAMSULOSIN (TAMULOSIN) (TAMSULOSIN) [Concomitant]
  8. PULMICORT (BUDESONIDE) (BUDESONIDE) [Concomitant]

REACTIONS (1)
  - Diarrhoea [None]
